FAERS Safety Report 9636591 (Version 6)
Quarter: 2015Q2

REPORT INFORMATION
  Report Type: Spontaneous
  Country: US (occurrence: US)
  Receive Date: 20131021
  Receipt Date: 20150413
  Transmission Date: 20150821
  Serious: Yes (Death, Life-Threatening, Hospitalization, Disabling, Other)
  Sender: FDA-Public Use
  Company Number: US-009507513-1310USA008744

PATIENT
  Sex: Female
  Weight: 109.75 kg

DRUGS (3)
  1. JANUVIA [Suspect]
     Active Substance: SITAGLIPTIN PHOSPHATE
     Dosage: 100 MG QD
     Route: 048
     Dates: start: 20100609, end: 20130218
  2. BYETTA [Suspect]
     Active Substance: EXENATIDE
     Indication: TYPE 2 DIABETES MELLITUS
     Dosage: 5 MICROGRAM, BID
     Dates: start: 20061111, end: 20061214
  3. JANUVIA [Suspect]
     Active Substance: SITAGLIPTIN PHOSPHATE
     Indication: TYPE 2 DIABETES MELLITUS
     Dosage: 100 MG, QD
     Route: 048
     Dates: start: 20080602, end: 20100605

REACTIONS (39)
  - Pancreatic carcinoma [Fatal]
  - Heart valve incompetence [Unknown]
  - Blood pressure increased [Unknown]
  - Leukocytosis [Unknown]
  - Dizziness [Unknown]
  - Hypothyroidism [Unknown]
  - Diverticulum [Unknown]
  - Atrial tachycardia [Recovered/Resolved]
  - Fall [Unknown]
  - Hyponatraemia [Unknown]
  - Atrial fibrillation [Recovered/Resolved]
  - Dehydration [Unknown]
  - Thrombocytopenia [Unknown]
  - Gastrooesophageal reflux disease [Unknown]
  - Sleep apnoea syndrome [Unknown]
  - Hyperlipidaemia [Unknown]
  - Bronchitis [Unknown]
  - Back pain [Unknown]
  - Treatment noncompliance [Unknown]
  - Cardiac failure congestive [Unknown]
  - Hysterectomy [Unknown]
  - Haematoma [Unknown]
  - Arthralgia [Unknown]
  - Essential hypertension [Unknown]
  - Fluid retention [Unknown]
  - Osteoarthritis [Unknown]
  - Thyroid disorder [Unknown]
  - Cerebral small vessel ischaemic disease [Unknown]
  - Hypokalaemia [Unknown]
  - Depression [Unknown]
  - Constipation [Unknown]
  - Chronic kidney disease [Not Recovered/Not Resolved]
  - Acute kidney injury [Unknown]
  - Appendicectomy [Unknown]
  - Anxiety disorder [Unknown]
  - Syncope [Unknown]
  - Decreased appetite [Unknown]
  - Gout [Unknown]
  - Vascular insufficiency [Unknown]

NARRATIVE: CASE EVENT DATE: 201208
